FAERS Safety Report 7235234-4 (Version None)
Quarter: 2011Q1

REPORT INFORMATION
  Report Type: 
  Country: None (occurrence: None)
  Receive Date: 20110120
  Receipt Date: 20110111
  Transmission Date: 20110831
  Serious: Yes (Hospitalization)
  Sender: FDA-Public Use
  Company Number: FR-KINGPHARMUSA00001-K201100049

PATIENT
  Age: 84 Year
  Sex: Male

DRUGS (5)
  1. FLECAINE [Suspect]
     Dosage: 100 MG, BID
     Route: 048
     Dates: start: 19850101
  2. KARDEGIC [Concomitant]
     Dosage: 75 MG, UNK
  3. THIOCOLCHICOSIDE [Concomitant]
  4. ALTACE [Suspect]
     Dosage: 5 MG, QD
     Route: 048
     Dates: start: 19970101
  5. FUROSEMIDE [Concomitant]
     Dosage: 20 MG, UNK

REACTIONS (5)
  - RALES [None]
  - PULMONARY FIBROSIS [None]
  - DYSPNOEA [None]
  - INTERSTITIAL LUNG DISEASE [None]
  - RESTRICTIVE PULMONARY DISEASE [None]
